FAERS Safety Report 6577375-0 (Version None)
Quarter: 2010Q1

REPORT INFORMATION
  Report Type: 
  Country: None (occurrence: None)
  Receive Date: 20100211
  Receipt Date: 20100201
  Transmission Date: 20100710
  Serious: Yes (Hospitalization)
  Sender: FDA-Public Use
  Company Number: GB-BIOGENIDEC-2009BI033767

PATIENT
  Age: 59 Year
  Sex: Female

DRUGS (8)
  1. AVONEX [Suspect]
     Indication: MULTIPLE SCLEROSIS
     Route: 030
     Dates: start: 20020201
  2. MEDICATION (NOS) [Concomitant]
     Indication: HYPERTENSION
  3. DOZOSIN [Concomitant]
     Indication: DRUG USE FOR UNKNOWN INDICATION
     Dates: start: 20091101
  4. GABAPENTIN [Concomitant]
     Indication: RESTLESS LEGS SYNDROME
  5. GABAPENTIN [Concomitant]
     Indication: PAIN IN EXTREMITY
  6. CLONAZEPAM [Concomitant]
     Indication: DRUG USE FOR UNKNOWN INDICATION
  7. PREGABALIN [Concomitant]
     Indication: RESTLESS LEGS SYNDROME
  8. PREGABALIN [Concomitant]
     Indication: PAIN IN EXTREMITY

REACTIONS (5)
  - BLOOD POTASSIUM INCREASED [None]
  - EPISTAXIS [None]
  - HYPERTENSION [None]
  - SECONDARY PROGRESSIVE MULTIPLE SCLEROSIS [None]
  - TRANSIENT ISCHAEMIC ATTACK [None]
